FAERS Safety Report 24194374 (Version 1)
Quarter: 2024Q3

REPORT INFORMATION
  Report Type: Spontaneous
  Country: CN (occurrence: CN)
  Receive Date: 20240809
  Receipt Date: 20240809
  Transmission Date: 20241016
  Serious: Yes (Hospitalization)
  Sender: GE HEALTHCARE
  Company Number: CN-GE HEALTHCARE-2024CSU008910

PATIENT
  Age: 58 Year
  Sex: Male

DRUGS (3)
  1. VISIPAQUE [Suspect]
     Active Substance: IODIXANOL
     Indication: Imaging procedure
     Dosage: 100 ML, TOTAL
     Route: 041
     Dates: start: 20240705, end: 20240705
  2. VISIPAQUE [Suspect]
     Active Substance: IODIXANOL
     Indication: Angiocardiogram
     Dosage: 100 ML, TOTAL
     Route: 041
     Dates: start: 20240716, end: 20240716
  3. VISIPAQUE [Suspect]
     Active Substance: IODIXANOL
     Indication: Percutaneous coronary intervention

REACTIONS (4)
  - Purpura [Recovering/Resolving]
  - Rash [Recovering/Resolving]
  - Pruritus [Recovering/Resolving]
  - Contrast media allergy [Recovering/Resolving]

NARRATIVE: CASE EVENT DATE: 20240705
